FAERS Safety Report 16617210 (Version 2)
Quarter: 2019Q3

REPORT INFORMATION
  Report Type: Spontaneous
  Country: JP (occurrence: JP)
  Receive Date: 20190723
  Receipt Date: 20190913
  Transmission Date: 20191004
  Serious: Yes (Other)
  Sender: FDA-Public Use
  Company Number: JP-ROCHE-2357949

PATIENT
  Age: 57 Year
  Sex: Male

DRUGS (3)
  1. CELLCEPT [Suspect]
     Active Substance: MYCOPHENOLATE MOFETIL\MYCOPHENOLATE MOFETIL HYDROCHLORIDE
     Indication: PROPHYLAXIS AGAINST TRANSPLANT REJECTION
     Route: 048
  2. METHYLPREDNISOLONE. [Concomitant]
     Active Substance: METHYLPREDNISOLONE
     Indication: PROPHYLAXIS AGAINST TRANSPLANT REJECTION
     Route: 065
  3. TACROLIMUS. [Concomitant]
     Active Substance: TACROLIMUS
     Indication: PROPHYLAXIS AGAINST TRANSPLANT REJECTION
     Route: 065

REACTIONS (18)
  - Urine output decreased [Unknown]
  - Gastrointestinal necrosis [Unknown]
  - Wound abscess [Unknown]
  - Enterocolitis [Unknown]
  - Septic shock [Recovering/Resolving]
  - Intestinal ischaemia [Unknown]
  - Peritonitis [Unknown]
  - Pulmonary oedema [Unknown]
  - Oedema [Unknown]
  - Disseminated intravascular coagulation [Recovering/Resolving]
  - Cytomegalovirus viraemia [Unknown]
  - Renal tubular necrosis [Unknown]
  - Urinary tract infection [Recovered/Resolved]
  - Thrombotic microangiopathy [Unknown]
  - Oliguria [Unknown]
  - Gallbladder rupture [Unknown]
  - Device related sepsis [Unknown]
  - Intestinal perforation [Unknown]
